FAERS Safety Report 16433951 (Version 1)
Quarter: 2019Q2

REPORT INFORMATION
  Report Type: Spontaneous
  Country: IT (occurrence: IT)
  Receive Date: 20190614
  Receipt Date: 20190614
  Transmission Date: 20190711
  Serious: Yes (Hospitalization)
  Sender: FDA-Public Use
  Company Number: IT-TEVA-2019-IT-1062450

PATIENT
  Age: 48 Year
  Sex: Female

DRUGS (4)
  1. MEDROL [Suspect]
     Active Substance: METHYLPREDNISOLONE
     Indication: NASOPHARYNGITIS
     Route: 048
     Dates: start: 20190413, end: 20190417
  2. LEVOXACIN [Suspect]
     Active Substance: LEVOFLOXACIN
     Indication: NASOPHARYNGITIS
     Dosage: 1 DOSAGE FORMS
     Route: 048
     Dates: start: 20190413, end: 20190417
  3. PANTOPRAZOLE [Suspect]
     Active Substance: PANTOPRAZOLE
     Indication: GASTRITIS PROPHYLAXIS
     Route: 048
     Dates: start: 20190413, end: 20190417
  4. ZHEKORT [Concomitant]
     Active Substance: MOMETASONE FUROATE MONOHYDRATE
     Route: 055

REACTIONS (2)
  - Blood bilirubin increased [Unknown]
  - Transaminases increased [Unknown]

NARRATIVE: CASE EVENT DATE: 20190417
